FAERS Safety Report 17437632 (Version 1)
Quarter: 2020Q1

REPORT INFORMATION
  Report Type: Spontaneous
  Country: DE (occurrence: DE)
  Receive Date: 20200219
  Receipt Date: 20200219
  Transmission Date: 20200409
  Serious: Yes (Hospitalization, Other)
  Sender: FDA-Public Use
  Company Number: DE-ASCEND THERAPEUTICS US, LLC-2080697

PATIENT
  Age: 54 Year
  Sex: Female

DRUGS (8)
  1. AIMOVIG [Suspect]
     Active Substance: ERENUMAB-AOOE
     Route: 058
     Dates: start: 201905, end: 201906
  2. AIMOVIG [Suspect]
     Active Substance: ERENUMAB-AOOE
     Route: 058
     Dates: start: 201903, end: 201906
  3. AIMOVIG [Suspect]
     Active Substance: ERENUMAB-AOOE
     Route: 058
     Dates: start: 201811, end: 201812
  4. CANDESARTAN. [Suspect]
     Active Substance: CANDESARTAN
     Route: 048
     Dates: start: 2016
  5. AIMOVIG [Suspect]
     Active Substance: ERENUMAB-AOOE
     Route: 058
  6. BISOPROLOL (BISOPROLOL), UNKNOWN?INDICATION FOR USE: HYPERTENSION [Suspect]
     Active Substance: BISOPROLOL
     Route: 048
     Dates: start: 2016
  7. ESTROGEL [Suspect]
     Active Substance: ESTRADIOL
     Indication: HORMONE REPLACEMENT THERAPY
     Route: 062
     Dates: start: 2016
  8. GYNOKADIN  (ESTRADIOL) [Suspect]
     Active Substance: ESTRADIOL
     Route: 062
     Dates: start: 2016

REACTIONS (17)
  - Transaminases increased [Recovered/Resolved]
  - Trigeminal neuralgia [Unknown]
  - Histamine intolerance [Unknown]
  - Liver function test abnormal [Recovered/Resolved]
  - Rash maculo-papular [Unknown]
  - Pruritus [Unknown]
  - Arterial spasm [Unknown]
  - Migraine [Unknown]
  - Psoriatic arthropathy [Unknown]
  - Hypertension [Unknown]
  - Depression [Unknown]
  - Liver function test increased [Recovered/Resolved]
  - Food intolerance [Recovered/Resolved]
  - Arteriospasm coronary [Unknown]
  - Hepatitis acute [Recovered/Resolved]
  - Hyperlipidaemia [Unknown]
  - Herpes zoster [Unknown]

NARRATIVE: CASE EVENT DATE: 201811
